FAERS Safety Report 16243408 (Version 1)
Quarter: 2019Q2

REPORT INFORMATION
  Report Type: Spontaneous
  Country: US (occurrence: US)
  Receive Date: 20190426
  Receipt Date: 20190426
  Transmission Date: 20190711
  Serious: Yes (Other)
  Sender: FDA-Public Use
  Company Number: US-BAYER-2019-080415

PATIENT
  Age: 45 Year
  Sex: Female
  Weight: 129 kg

DRUGS (3)
  1. ALEVE [Suspect]
     Active Substance: NAPROXEN SODIUM
     Indication: PAIN
     Dosage: UNK
  2. ALEVE [Suspect]
     Active Substance: NAPROXEN SODIUM
     Indication: PAIN
     Dosage: UNK
  3. ALEVE [Suspect]
     Active Substance: NAPROXEN SODIUM
     Indication: PAIN
     Dosage: 2 DF
     Route: 048
     Dates: start: 2014, end: 20190417

REACTIONS (3)
  - Malaise [Recovering/Resolving]
  - Pharyngeal injury [Not Recovered/Not Resolved]
  - Suspected product contamination [None]

NARRATIVE: CASE EVENT DATE: 20190417
